FAERS Safety Report 16732366 (Version 1)
Quarter: 2019Q3

REPORT INFORMATION
  Report Type: Spontaneous
  Country: US (occurrence: US)
  Receive Date: 20190822
  Receipt Date: 20190822
  Transmission Date: 20191005
  Serious: No
  Sender: FDA-Public Use
  Company Number: US-GLAXOSMITHKLINE-US2019AMR147363

PATIENT
  Sex: Female
  Weight: 74 kg

DRUGS (2)
  1. NICORETTE [Suspect]
     Active Substance: NICOTINE
     Indication: SMOKING CESSATION THERAPY
     Dosage: UNK, (1 PIECE EVERY 45 MINUTES)
     Dates: start: 20190711
  2. NICORETTE [Suspect]
     Active Substance: NICOTINE
     Indication: SMOKING CESSATION THERAPY
     Dosage: UNK, QD
     Dates: start: 20190711

REACTIONS (3)
  - Feeling abnormal [Unknown]
  - Nicotine dependence [Unknown]
  - Product use issue [Unknown]
